FAERS Safety Report 5044725-6 (Version None)
Quarter: 2006Q2

REPORT INFORMATION
  Report Type: 
  Country: None (occurrence: None)
  Receive Date: 20060601
  Receipt Date: 20060314
  Transmission Date: 20061013
  Serious: No
  Sender: FDA-Public Use
  Company Number: 2006-BP-01888BP

PATIENT
  Age: 70 Year
  Sex: Male

DRUGS (7)
  1. SPIRIVA [Suspect]
     Dosage: 18 MCG (18 MCG)
     Dates: start: 20051101, end: 20060201
  2. NEXIUM [Concomitant]
  3. PULMICORT [Concomitant]
  4. COLACE (DOCUSATE SODIUM) [Concomitant]
  5. ALBUTEROL SPIROS [Concomitant]
  6. TERAZOSIN (TERAZOSIN) [Concomitant]
  7. CARDURA [Concomitant]

REACTIONS (1)
  - LOSS OF CONSCIOUSNESS [None]
